FAERS Safety Report 25170264 (Version 2)
Quarter: 2025Q2

REPORT INFORMATION
  Report Type: Report from Study
  Country: US (occurrence: US)
  Receive Date: 20250408
  Receipt Date: 20250424
  Transmission Date: 20250717
  Serious: No
  Sender: ABBVIE
  Company Number: US-ABBVIE-6209358

PATIENT
  Age: 72 Year
  Sex: Female
  Weight: 86.6 kg

DRUGS (4)
  1. CREON [Suspect]
     Active Substance: PANCRELIPASE AMYLASE\PANCRELIPASE LIPASE\PANCRELIPASE PROTEASE
     Indication: Pancreatic failure
     Dosage: FREQUENCY TIME: 37 DAYS, FORM STRENGTH: 36000 UNIT, 2 CAPS EACH MEAL AND 1 EACH SNACK
     Route: 048
     Dates: start: 20230802, end: 20241130
  2. ASPIRIN [Concomitant]
     Active Substance: ASPIRIN
     Indication: Product used for unknown indication
  3. LEVOTHYROXINE [Concomitant]
     Active Substance: LEVOTHYROXINE
     Indication: Hypothyroidism
  4. AMLODIPINE BESYLATE\LISINOPRIL [Concomitant]
     Active Substance: AMLODIPINE BESYLATE\LISINOPRIL
     Indication: Hypertension

REACTIONS (1)
  - COVID-19 [Recovering/Resolving]

NARRATIVE: CASE EVENT DATE: 20250101
